FAERS Safety Report 10428292 (Version 1)
Quarter: 2014Q3

REPORT INFORMATION
  Report Type: Spontaneous
  Country: JP (occurrence: JP)
  Receive Date: 20140903
  Receipt Date: 20140903
  Transmission Date: 20150326
  Serious: Yes (Hospitalization, Other)
  Sender: FDA-Public Use
  Company Number: JP-CUBIST PHARMACEUTICAL, INC.-2014CBST001226

PATIENT

DRUGS (20)
  1. VANCOMYCIN [Concomitant]
     Active Substance: VANCOMYCIN
     Indication: ACINETOBACTER INFECTION
  2. CUBICIN [Suspect]
     Active Substance: DAPTOMYCIN
     Indication: OSTEOMYELITIS BACTERIAL
     Dosage: UNK UNK, UNK
     Route: 065
  3. LEVOFLOXACIN [Concomitant]
     Active Substance: LEVOFLOXACIN
     Indication: BACTERAEMIA
  4. VANCOMYCIN [Concomitant]
     Active Substance: VANCOMYCIN
     Indication: BACTERAEMIA
  5. MEROPENEM. [Concomitant]
     Active Substance: MEROPENEM
     Indication: OSTEOMYELITIS BACTERIAL
     Dosage: UNK UNK, UNK
     Route: 065
  6. CUBICIN [Suspect]
     Active Substance: DAPTOMYCIN
     Indication: STENOTROPHOMONAS INFECTION
  7. MINOCYCLINE [Concomitant]
     Active Substance: MINOCYCLINE\MINOCYCLINE HYDROCHLORIDE
     Indication: BACTERAEMIA
  8. CEFOZOPRAN [Concomitant]
     Active Substance: CEFOZOPRAN
     Indication: STENOTROPHOMONAS INFECTION
     Dosage: UNK UNK, UNK
     Route: 065
  9. CEFOZOPRAN [Concomitant]
     Active Substance: CEFOZOPRAN
     Indication: BACTERAEMIA
  10. LATAMOXEF                          /00598802/ [Concomitant]
     Indication: OSTEOMYELITIS BACTERIAL
     Dosage: 1G, Q8H
     Route: 065
  11. MEROPENEM. [Concomitant]
     Active Substance: MEROPENEM
     Indication: STENOTROPHOMONAS INFECTION
  12. VANCOMYCIN [Concomitant]
     Active Substance: VANCOMYCIN
     Indication: STENOTROPHOMONAS INFECTION
     Dosage: UNK UNK, UNK
     Route: 065
  13. CUBICIN [Suspect]
     Active Substance: DAPTOMYCIN
     Indication: STAPHYLOCOCCAL INFECTION
     Dosage: UNK UNK, UNK
     Route: 065
  14. CUBICIN [Suspect]
     Active Substance: DAPTOMYCIN
     Indication: OFF LABEL USE
  15. LEVOFLOXACIN [Concomitant]
     Active Substance: LEVOFLOXACIN
     Indication: STENOTROPHOMONAS INFECTION
     Dosage: UNK UNK, UNK
     Route: 065
  16. LEVOFLOXACIN [Concomitant]
     Active Substance: LEVOFLOXACIN
     Indication: ACINETOBACTER INFECTION
  17. CEFOZOPRAN [Concomitant]
     Active Substance: CEFOZOPRAN
     Indication: ACINETOBACTER INFECTION
  18. MINOCYCLINE [Concomitant]
     Active Substance: MINOCYCLINE\MINOCYCLINE HYDROCHLORIDE
     Indication: STENOTROPHOMONAS INFECTION
     Dosage: UNK UNK, UNK
     Route: 065
  19. MINOCYCLINE [Concomitant]
     Active Substance: MINOCYCLINE\MINOCYCLINE HYDROCHLORIDE
     Indication: ACINETOBACTER INFECTION
  20. LATAMOXEF                          /00598802/ [Concomitant]
     Indication: STENOTROPHOMONAS INFECTION

REACTIONS (3)
  - Bacteraemia [Recovered/Resolved]
  - Acinetobacter infection [Recovered/Resolved]
  - Stenotrophomonas infection [Recovered/Resolved]
